FAERS Safety Report 25452232 (Version 1)
Quarter: 2025Q2

REPORT INFORMATION
  Report Type: Spontaneous
  Country: JP (occurrence: JP)
  Receive Date: 20250618
  Receipt Date: 20250618
  Transmission Date: 20250717
  Serious: Yes (Hospitalization)
  Sender: EISAI
  Company Number: JP-Eisai-202113162_LEN-EC_P_1

PATIENT
  Age: 63 Year
  Sex: Female

DRUGS (9)
  1. LENVATINIB [Suspect]
     Active Substance: LENVATINIB
     Indication: Endometrial cancer recurrent
     Dates: start: 20220218, end: 202204
  2. LENVATINIB [Suspect]
     Active Substance: LENVATINIB
     Dates: start: 20220509, end: 20220601
  3. LENVATINIB [Suspect]
     Active Substance: LENVATINIB
     Dates: start: 2022, end: 2022
  4. LENVATINIB [Suspect]
     Active Substance: LENVATINIB
     Dates: start: 20221011, end: 2022
  5. PEMBROLIZUMAB [Suspect]
     Active Substance: PEMBROLIZUMAB
     Indication: Endometrial cancer recurrent
     Dates: start: 20220218, end: 20220509
  6. PEMBROLIZUMAB [Suspect]
     Active Substance: PEMBROLIZUMAB
     Dates: start: 2022, end: 2022
  7. NIFEDIPINE [Concomitant]
     Active Substance: NIFEDIPINE
     Indication: Hypertension
  8. NIFEDIPINE [Concomitant]
     Active Substance: NIFEDIPINE
  9. NIFEDIPINE [Concomitant]
     Active Substance: NIFEDIPINE

REACTIONS (6)
  - Pneumothorax [Recovered/Resolved]
  - Hypertension [Recovered/Resolved]
  - Hypothyroidism [Recovered/Resolved]
  - Palmar-plantar erythrodysaesthesia syndrome [Recovered/Resolved]
  - Fatigue [Recovered/Resolved]
  - Stomatitis [Unknown]

NARRATIVE: CASE EVENT DATE: 20220101
